FAERS Safety Report 6788502-4 (Version None)
Quarter: 2010Q2

REPORT INFORMATION
  Report Type: 
  Country: None (occurrence: None)
  Receive Date: 20100623
  Receipt Date: 20080331
  Transmission Date: 20101027
  Serious: No
  Sender: FDA-Public Use
  Company Number: US-PFIZER INC-2008028884

PATIENT
  Sex: Female
  Weight: 63.636 kg

DRUGS (3)
  1. DEPO-PROVERA SUSPENSION/INJ [Suspect]
     Indication: CONTRACEPTION
     Route: 030
  2. VITAMINS [Concomitant]
  3. VITAMIN B [Concomitant]

REACTIONS (3)
  - INCORRECT ROUTE OF DRUG ADMINISTRATION [None]
  - INJECTION SITE MOVEMENT IMPAIRMENT [None]
  - INJECTION SITE PAIN [None]
